FAERS Safety Report 9136540 (Version 1)
Quarter: 2013Q1

REPORT INFORMATION
  Report Type: Spontaneous
  Country: US (occurrence: US)
  Receive Date: 20130304
  Receipt Date: 20130304
  Transmission Date: 20140127
  Serious: No
  Sender: FDA-Public Use
  Company Number: US-ABBOTT-12P-163-0928373-00

PATIENT
  Age: 58 Year
  Sex: Male
  Weight: 122.58 kg

DRUGS (5)
  1. ANDROGEL 1% [Suspect]
     Indication: BLOOD TESTOSTERONE DECREASED
     Dosage: PACKETS APPLIES TO SHOULDERS
     Dates: start: 2011
  2. OXYCODONE [Concomitant]
     Indication: PAIN
  3. TRAMADOL [Concomitant]
     Indication: PAIN
  4. UNKNOWN MEDICATION [Concomitant]
     Indication: BLOOD PRESSURE
  5. UNKNOWN MEDICATION [Concomitant]
     Indication: ATRIAL FIBRILLATION

REACTIONS (2)
  - Blood alcohol increased [Unknown]
  - Blood alcohol increased [Unknown]
